FAERS Safety Report 4709800-1 (Version None)
Quarter: 2005Q3

REPORT INFORMATION
  Report Type: 
  Country: None (occurrence: None)
  Receive Date: 20050708
  Receipt Date: 20050421
  Transmission Date: 20060218
  Serious: Yes (Life-Threatening, Hospitalization, Other)
  Sender: FDA-Public Use
  Company Number: PHEH2005US04663

PATIENT
  Age: 50 Year
  Sex: Female
  Weight: 74 kg

DRUGS (8)
  1. ENABLEX [Suspect]
     Indication: HYPERTONIC BLADDER
     Dosage: 7.5 MG, QD
     Dates: start: 20050331, end: 20050401
  2. WELLBUTRIN [Concomitant]
  3. VICODIN [Concomitant]
  4. DURAGESIC-100 [Concomitant]
  5. TRAZODONE [Concomitant]
  6. BACLOFEN [Concomitant]
  7. ADALAT [Concomitant]
  8. SOMA [Concomitant]

REACTIONS (3)
  - DYSPNOEA [None]
  - PRURITUS [None]
  - URTICARIA [None]
